FAERS Safety Report 16730770 (Version 1)
Quarter: 2019Q3

REPORT INFORMATION
  Report Type: Spontaneous
  Country: US (occurrence: US)
  Receive Date: 20190705
  Receipt Date: 20190705
  Transmission Date: 20191005
  Serious: Yes (Hospitalization)
  Sender: FDA-Public Use
  Company Number: None

PATIENT
  Age: 72 Year
  Sex: Male
  Weight: 125.64 kg

DRUGS (1)
  1. PRASUGREL. [Suspect]
     Active Substance: PRASUGREL
     Indication: STENT PLACEMENT
     Route: 048
     Dates: start: 20190403, end: 20190408

REACTIONS (5)
  - Vomiting [None]
  - Diarrhoea [None]
  - Dizziness [None]
  - Nausea [None]
  - Rash [None]

NARRATIVE: CASE EVENT DATE: 20190408
